FAERS Safety Report 10004745 (Version 1)
Quarter: 2014Q1

REPORT INFORMATION
  Report Type: Spontaneous
  Country: US (occurrence: US)
  Receive Date: 20140312
  Receipt Date: 20140312
  Transmission Date: 20141002
  Serious: Yes (Hospitalization)
  Sender: FDA-Public Use
  Company Number: US-GLAXOSMITHKLINE-A1064406A

PATIENT
  Age: 49 Year
  Sex: Female

DRUGS (2)
  1. LAMICTAL [Suspect]
     Indication: EPILEPSY
     Dosage: 100MG UNKNOWN
     Route: 065
     Dates: start: 2004
  2. LAMOTRIGINE [Suspect]
     Indication: EPILEPSY
     Dosage: 100MG UNKNOWN
     Route: 065

REACTIONS (7)
  - Brain neoplasm [Unknown]
  - Spinal disorder [Unknown]
  - Ill-defined disorder [Unknown]
  - Disability [Unknown]
  - Surgery [Unknown]
  - Drug ineffective [Unknown]
  - Convulsion [Unknown]
